FAERS Safety Report 9929068 (Version 1)
Quarter: 2014Q1

REPORT INFORMATION
  Report Type: Spontaneous
  Country: GB (occurrence: GB)
  Receive Date: 20140227
  Receipt Date: 20140227
  Transmission Date: 20141002
  Serious: Yes (Hospitalization)
  Sender: FDA-Public Use
  Company Number: GB-TEVA-464627ISR

PATIENT
  Age: 89 Year
  Sex: Female

DRUGS (7)
  1. WARFARIN [Suspect]
     Dosage: VARIABLE
     Route: 048
  2. NITROFURANTOIN [Interacting]
     Indication: URINARY TRACT INFECTION
     Route: 048
     Dates: start: 20140123
  3. RAMIPRIL [Concomitant]
     Dosage: IN THE MORNING. BEEN ON LONG TERM.
     Route: 048
  4. IBUPROFEN [Concomitant]
     Dosage: TOPICALLY THREE TIMES DAILY / AS REQUIRED.
     Route: 061
     Dates: start: 20140115
  5. BISOPROLOL [Concomitant]
     Dosage: IN THE MORNING. BEEN ON LONG TERM.
     Route: 048
  6. ATORVASTATIN [Concomitant]
     Dosage: IN THE EVENING. BEEN ON LONG TERM.
     Route: 048
  7. AMLODIPINE [Concomitant]
     Dosage: IN THE MORNING. BEEN ON LONG TERM.
     Route: 048

REACTIONS (2)
  - International normalised ratio increased [Recovering/Resolving]
  - Drug interaction [Unknown]
